FAERS Safety Report 7369620-9 (Version None)
Quarter: 2011Q1

REPORT INFORMATION
  Report Type: 
  Country: None (occurrence: None)
  Receive Date: 20110323
  Receipt Date: 20110315
  Transmission Date: 20110831
  Serious: Yes (Disabling)
  Sender: FDA-Public Use
  Company Number: US-MERCK-1103USA02119

PATIENT
  Age: 70 Year
  Sex: Female

DRUGS (2)
  1. DEMADEX [Concomitant]
     Route: 065
  2. COZAAR [Suspect]
     Indication: BLOOD PRESSURE
     Route: 048

REACTIONS (1)
  - DYSPHONIA [None]
